FAERS Safety Report 8165377-2 (Version None)
Quarter: 2012Q1

REPORT INFORMATION
  Report Type: 
  Country: None (occurrence: None)
  Receive Date: 20120103
  Receipt Date: 20111012
  Transmission Date: 20120608
  Serious: No
  Sender: FDA-Public Use
  Company Number: AE-2011-001904

PATIENT
  Age: 38 Year
  Sex: Female
  Weight: 45.3597 kg

DRUGS (3)
  1. COPEGUS [Concomitant]
  2. INCIVEK [Suspect]
     Dosage: 2250 MG (750 MG, 3 IN 1 D), ORAL
     Route: 048
     Dates: start: 20110909
  3. PEGASYS [Concomitant]

REACTIONS (12)
  - PAIN [None]
  - ORAL PAIN [None]
  - FEELING ABNORMAL [None]
  - CHILLS [None]
  - NAUSEA [None]
  - FATIGUE [None]
  - AGITATION [None]
  - PYREXIA [None]
  - RHINORRHOEA [None]
  - HEADACHE [None]
  - GINGIVAL SWELLING [None]
  - CONSTIPATION [None]
